FAERS Safety Report 25872945 (Version 1)
Quarter: 2025Q4

REPORT INFORMATION
  Report Type: Spontaneous
  Country: US (occurrence: None)
  Receive Date: 20251001
  Receipt Date: 20251001
  Transmission Date: 20260117
  Serious: No
  Sender: FDA-CTU
  Company Number: None

PATIENT
  Age: 42 Year
  Sex: Male

DRUGS (1)
  1. DOVATO [Suspect]
     Active Substance: DOLUTEGRAVIR SODIUM\LAMIVUDINE
     Indication: HIV infection
     Dosage: 1 TABLET OF 50-300MG DAILY ORAL
     Route: 048
     Dates: start: 20240401, end: 20251001

REACTIONS (1)
  - Nausea [None]

NARRATIVE: CASE EVENT DATE: 20251001
